FAERS Safety Report 9675462 (Version 1)
Quarter: 2013Q4

REPORT INFORMATION
  Report Type: Spontaneous
  Country: SE (occurrence: SE)
  Receive Date: 20131107
  Receipt Date: 20131107
  Transmission Date: 20140711
  Serious: Yes (Hospitalization)
  Sender: FDA-Public Use
  Company Number: PHHY2013SE124098

PATIENT
  Age: 82 Year
  Sex: Female

DRUGS (6)
  1. RIMACTAN SANDOZ [Suspect]
     Dates: start: 20130829, end: 20130912
  2. LEVAXIN [Interacting]
  3. TROMBYL [Suspect]
     Route: 048
  4. CEFOTAXIM [Concomitant]
  5. CLOXACILLIN [Concomitant]
  6. GENSUMYCIN [Concomitant]

REACTIONS (2)
  - Hypoalbuminaemia [Unknown]
  - Drug interaction [Unknown]
